FAERS Safety Report 23831158 (Version 1)
Quarter: 2024Q2

REPORT INFORMATION
  Report Type: Spontaneous
  Country: KR (occurrence: KR)
  Receive Date: 20240508
  Receipt Date: 20240508
  Transmission Date: 20240716
  Serious: Yes (Hospitalization, Other)
  Sender: FDA-Public Use
  Company Number: KR-009507513-2405KOR001409

PATIENT
  Age: 49 Year
  Sex: Male

DRUGS (1)
  1. PEMBROLIZUMAB [Suspect]
     Active Substance: PEMBROLIZUMAB
     Indication: Non-small cell lung cancer stage II
     Dosage: 2 MILLIGRAM/KILOGRAMS, EVERY 3 WEEKS
     Dates: start: 201704

REACTIONS (3)
  - Pneumonia haemophilus [Recovered/Resolved]
  - Pneumonia pneumococcal [Recovered/Resolved]
  - Herpes zoster [Unknown]

NARRATIVE: CASE EVENT DATE: 20170101
